FAERS Safety Report 4507674-5 (Version None)
Quarter: 2004Q4

REPORT INFORMATION
  Report Type: 
  Country: None (occurrence: None)
  Receive Date: 20041118
  Receipt Date: 20041102
  Transmission Date: 20050328
  Serious: Yes (Other)
  Sender: FDA-Public Use
  Company Number: 8008056

PATIENT
  Age: 40 Year
  Sex: Female

DRUGS (6)
  1. KEPPRA [Suspect]
     Indication: EPILEPSY
  2. KEPPRA [Suspect]
     Indication: EPILEPSY
     Dosage: 1000 MG 2/D
  3. KEPPRA [Suspect]
     Indication: EPILEPSY
     Dosage: 1500 MG/D
  4. TOPAMAX [Concomitant]
  5. LAMICTAL [Concomitant]
  6. TRILEPTAL [Concomitant]

REACTIONS (3)
  - FATIGUE [None]
  - MALAISE [None]
  - STATUS EPILEPTICUS [None]
